FAERS Safety Report 23995972 (Version 3)
Quarter: 2024Q4

REPORT INFORMATION
  Report Type: Spontaneous
  Country: US (occurrence: US)
  Receive Date: 20240620
  Receipt Date: 20241227
  Transmission Date: 20250115
  Serious: No
  Sender: PFIZER
  Company Number: US-PFIZER INC-PV202400072437

PATIENT
  Age: 79 Year
  Sex: Female

DRUGS (3)
  1. INLYTA [Suspect]
     Active Substance: AXITINIB
     Indication: Renal cancer
     Dosage: 3 MG, DAILY (TAKE 3 TABLETS DAILY)
     Route: 048
  2. INLYTA [Suspect]
     Active Substance: AXITINIB
     Indication: Hepatocellular carcinoma
     Dosage: 5 MG
     Dates: end: 2024
  3. INLYTA [Suspect]
     Active Substance: AXITINIB
     Dosage: 3 MG, DAILY (THREE 1 MG PILLS ONE TIME DAILY)
     Route: 048
     Dates: start: 2024

REACTIONS (2)
  - Headache [Unknown]
  - Off label use [Unknown]

NARRATIVE: CASE EVENT DATE: 20240101
